FAERS Safety Report 16478314 (Version 2)
Quarter: 2019Q3

REPORT INFORMATION
  Report Type: Report from Study
  Country: CA (occurrence: CA)
  Receive Date: 20190626
  Receipt Date: 20190923
  Transmission Date: 20191004
  Serious: No
  Sender: FDA-Public Use
  Company Number: CA-BEH-2019103419

PATIENT
  Sex: Male

DRUGS (4)
  1. HIZENTRA [Suspect]
     Active Substance: HUMAN IMMUNOGLOBULIN G
     Indication: DELAYED EFFECTS OF RADIATION
     Dosage: 10 GRAM, BIW
     Route: 058
     Dates: start: 201901
  2. PREDNISONE. [Concomitant]
     Active Substance: PREDNISONE
  3. HIZENTRA [Suspect]
     Active Substance: HUMAN IMMUNOGLOBULIN G
     Indication: SECONDARY IMMUNODEFICIENCY
     Dosage: UNK
     Route: 058
  4. HIZENTRA [Suspect]
     Active Substance: HUMAN IMMUNOGLOBULIN G
     Indication: TESTIS CANCER
     Dosage: 6 GRAM
     Route: 058

REACTIONS (5)
  - Ill-defined disorder [Unknown]
  - Injection site urticaria [Unknown]
  - Swelling [Unknown]
  - Blood bilirubin abnormal [Recovered/Resolved]
  - Injection site urticaria [Recovered/Resolved with Sequelae]
